FAERS Safety Report 5569719-3 (Version None)
Quarter: 2007Q4

REPORT INFORMATION
  Report Type: 
  Country: None (occurrence: None)
  Receive Date: 20071220
  Receipt Date: 20071122
  Transmission Date: 20080405
  Serious: Yes (Hospitalization)
  Sender: FDA-Public Use
  Company Number: FR-AMGEN-UK253748

PATIENT
  Sex: Male

DRUGS (5)
  1. PANITUMUMAB - PRIOR TO STUDY DRUG ADMINISTRATION [Suspect]
  2. PANITUMUMAB [Suspect]
     Indication: COLORECTAL CANCER
     Route: 042
     Dates: start: 20071112
  3. LEUCOVORIN CALCIUM [Suspect]
  4. FLUOROURACIL [Suspect]
  5. IRINOTECAN HCL [Suspect]

REACTIONS (3)
  - APLASIA [None]
  - GENERAL PHYSICAL HEALTH DETERIORATION [None]
  - SUBILEUS [None]
